FAERS Safety Report 13553147 (Version 1)
Quarter: 2017Q2

REPORT INFORMATION
  Report Type: Spontaneous
  Country: US (occurrence: US)
  Receive Date: 20170517
  Receipt Date: 20170517
  Transmission Date: 20170830
  Serious: No
  Sender: FDA-Public Use
  Company Number: US-ASTRAZENECA-2017SE50576

PATIENT
  Age: 60 Year
  Sex: Female

DRUGS (2)
  1. SPIRIVA [Concomitant]
     Active Substance: TIOTROPIUM BROMIDE MONOHYDRATE
     Route: 055
     Dates: end: 201704
  2. BEVESPI AEROSPHERE [Suspect]
     Active Substance: FORMOTEROL FUMARATE\GLYCOPYRROLATE
     Indication: CHRONIC OBSTRUCTIVE PULMONARY DISEASE
     Dosage: 9/4.8MCG  TWO PUFFS TWICE DAILY
     Route: 055
     Dates: start: 201704

REACTIONS (4)
  - Hyperlipidaemia [Unknown]
  - Intentional product misuse [Unknown]
  - Urinary retention [Unknown]
  - Hypertension [Unknown]

NARRATIVE: CASE EVENT DATE: 201704
